FAERS Safety Report 25804670 (Version 1)
Quarter: 2025Q3

REPORT INFORMATION
  Report Type: Spontaneous
  Country: CA (occurrence: CA)
  Receive Date: 20250915
  Receipt Date: 20250915
  Transmission Date: 20251021
  Serious: Yes (Hospitalization, Other)
  Sender: JOHNSON AND JOHNSON
  Company Number: CA-JNJFOC-20250915710

PATIENT
  Age: 62 Year
  Sex: Female

DRUGS (1)
  1. USTEKINUMAB [Suspect]
     Active Substance: USTEKINUMAB
     Indication: Psoriasis
     Route: 058

REACTIONS (6)
  - Procedural pain [Unknown]
  - Abdominal discomfort [Unknown]
  - Abscess oral [Unknown]
  - Asthenia [Unknown]
  - Bacterial infection [Unknown]
  - Off label use [Unknown]
